FAERS Safety Report 20461123 (Version 5)
Quarter: 2024Q1

REPORT INFORMATION
  Report Type: Report from Study
  Country: US (occurrence: US)
  Receive Date: 20220211
  Receipt Date: 20240207
  Transmission Date: 20240410
  Serious: No
  Sender: FDA-Public Use
  Company Number: US-HRARD-2021000674

PATIENT
  Age: 57 Year
  Sex: Female

DRUGS (13)
  1. LYSODREN [Suspect]
     Active Substance: MITOTANE
     Indication: Adrenocortical carcinoma
     Dosage: ^3500 MG BID?
     Route: 048
     Dates: start: 20210325, end: 20210630
  2. LYSODREN [Suspect]
     Active Substance: MITOTANE
     Indication: Adrenocortical carcinoma
     Route: 048
     Dates: start: 20210701
  3. LYSODREN [Suspect]
     Active Substance: MITOTANE
     Indication: Adrenocortical carcinoma
     Dosage: 06 TABLETS DAILY
     Route: 048
  4. BENADRYL 25 mg, capsule [Concomitant]
     Indication: Product used for unknown indication
     Route: 065
  5. HYDRCORT [Concomitant]
     Indication: Product used for unknown indication
     Dosage: UNK
     Route: 065
  6. IBUPROFEN 200 mg, Tablet [Concomitant]
     Indication: Product used for unknown indication
     Route: 065
  7. PANTOPRAZOLE [Concomitant]
     Active Substance: PANTOPRAZOLE
     Indication: Dyspepsia
     Dosage: UNK
     Route: 065
  8. ROSUVASTATIN [Concomitant]
     Active Substance: ROSUVASTATIN
     Indication: Product used for unknown indication
     Dosage: UNK
     Route: 065
  9. SALINE NASAL SPRAY  0.65% [Concomitant]
     Indication: Product used for unknown indication
     Dosage: UNK
     Route: 065
  10. TYLENOL [Concomitant]
     Active Substance: ACETAMINOPHEN
     Indication: Product used for unknown indication
     Route: 065
  11. Ondansetron Tab 4 mg [Concomitant]
     Indication: Product used for unknown indication
     Route: 065
  12. Levothyroxin tab 125 mcg [Concomitant]
     Indication: Product used for unknown indication
     Route: 065
  13. Citalopram Tab 20 mg [Concomitant]
     Indication: Product used for unknown indication
     Route: 065

REACTIONS (7)
  - Dysgeusia [Not Recovered/Not Resolved]
  - Fatigue [Unknown]
  - Dizziness [Unknown]
  - Diarrhoea [Unknown]
  - Nausea [Unknown]
  - Somnolence [Not Recovered/Not Resolved]
  - Rash [Not Recovered/Not Resolved]

NARRATIVE: CASE EVENT DATE: 20210601
